FAERS Safety Report 9245017 (Version 1)
Quarter: 2013Q1

REPORT INFORMATION
  Report Type: Spontaneous
  Country: US (occurrence: None)
  Receive Date: 20121130
  Receipt Date: 20121130
  Transmission Date: 20140127
  Serious: Yes (Other)
  Sender: FDA-Public Use
  Company Number: PHEH2011US012732

PATIENT
  Age: 77 Year
  Sex: Female

DRUGS (3)
  1. TEKTURNA [Suspect]
  2. DILTIAZEM HYDROCHLORIDE (DILTIAZEM HYDROCHLORIDE) [Concomitant]
  3. MULTI-VIT (VITAMINS NOS) [Concomitant]

REACTIONS (1)
  - Hypertension [None]
